FAERS Safety Report 26034221 (Version 1)
Quarter: 2025Q4

REPORT INFORMATION
  Report Type: Spontaneous
  Country: EU (occurrence: EU)
  Receive Date: 20251112
  Receipt Date: 20251112
  Transmission Date: 20260118
  Serious: Yes (Other)
  Sender: BOEHRINGER INGELHEIM
  Company Number: EU-BoehringerIngelheim-2025-BI-105677

PATIENT
  Sex: Male
  Weight: 60 kg

DRUGS (6)
  1. NINTEDANIB [Suspect]
     Active Substance: NINTEDANIB
     Indication: Pulmonary fibrosis
  2. NINTEDANIB [Suspect]
     Active Substance: NINTEDANIB
     Indication: Hypersensitivity pneumonitis
  3. HYDROMORPHONE [Concomitant]
     Active Substance: HYDROMORPHONE
  4. PANTOPRAZOLE [Concomitant]
     Active Substance: PANTOPRAZOLE
  5. LOW DOSE PREDNISOLONE [Concomitant]
  6. OXYGEN [Concomitant]
     Active Substance: OXYGEN

REACTIONS (2)
  - Hypersensitivity pneumonitis [Unknown]
  - Disease progression [Unknown]
